FAERS Safety Report 9090876 (Version 3)
Quarter: 2013Q1

REPORT INFORMATION
  Report Type: Report from Study
  Country: DE (occurrence: DE)
  Receive Date: 20130131
  Receipt Date: 20130211
  Transmission Date: 20140127
  Serious: Yes (Other)
  Sender: FDA-Public Use
  Company Number: DE-ROCHE-1183980

PATIENT
  Age: 71 Year
  Sex: Female
  Weight: 70 kg

DRUGS (11)
  1. TOCILIZUMAB [Suspect]
     Indication: RHEUMATOID ARTHRITIS
     Route: 042
     Dates: start: 20120418
  2. QUENSYL [Suspect]
     Indication: RHEUMATOID ARTHRITIS
     Route: 065
  3. PREDNISOLON [Suspect]
     Indication: RHEUMATOID ARTHRITIS
     Route: 065
  4. PREDNISOLON [Suspect]
     Route: 065
  5. NEBIVOLOL [Concomitant]
     Route: 065
  6. SIMVA [Concomitant]
  7. GABAPENTIN [Concomitant]
  8. FORAIR (GERMANY) [Concomitant]
  9. ISCOVER [Concomitant]
  10. PROVAS [Concomitant]
  11. LEVOMEPROMAZINE [Concomitant]
     Route: 065

REACTIONS (3)
  - Arrhythmia [Not Recovered/Not Resolved]
  - Rheumatoid arthritis [Recovered/Resolved]
  - Influenza [Recovered/Resolved]
